FAERS Safety Report 4350159-X (Version None)
Quarter: 2004Q2

REPORT INFORMATION
  Report Type: 
  Country: None (occurrence: None)
  Receive Date: 20040429
  Receipt Date: 20040414
  Transmission Date: 20050107
  Serious: Yes (Hospitalization, Other)
  Sender: FDA-Public Use
  Company Number: PHBS2004JP05658

PATIENT
  Age: 55 Year
  Sex: Male
  Weight: 50 kg

DRUGS (5)
  1. NEORAL [Suspect]
     Indication: RENAL TRANSPLANT
     Dosage: 140 MG/D
     Route: 048
  2. METHYLPREDNISOLONE [Suspect]
     Indication: RENAL TRANSPLANT
     Dosage: 8 MG/D
     Route: 048
  3. MYCOPHENOLATE MOFETIL [Suspect]
     Indication: RENAL TRANSPLANT
     Dosage: 1.5 G/D
     Route: 048
  4. MIZORIBINE [Concomitant]
  5. PREDNISOLONE [Concomitant]

REACTIONS (5)
  - GRAFT DYSFUNCTION [None]
  - KIDNEY TRANSPLANT REJECTION [None]
  - NEPHRECTOMY [None]
  - RENAL CELL CARCINOMA STAGE I [None]
  - RENAL CYST [None]
